FAERS Safety Report 4898372-7 (Version None)
Quarter: 2006Q1

REPORT INFORMATION
  Report Type: 
  Country: None (occurrence: None)
  Receive Date: 20060131
  Receipt Date: 20060131
  Transmission Date: 20060701
  Serious: Yes (Hospitalization)
  Sender: FDA-Public Use
  Company Number: None

PATIENT
  Age: 52 Year
  Sex: Male

DRUGS (5)
  1. NAPROSYN [Suspect]
     Indication: INFLAMMATION
     Dosage: 250 MG BID PO CHRONIC
     Route: 048
  2. ASPIRIN [Concomitant]
  3. CLONIDINE HCL [Concomitant]
  4. ANTABUSE [Concomitant]
  5. HYDROCHLOROTHIAZOLE [Concomitant]

REACTIONS (3)
  - ALCOHOL USE [None]
  - GASTROINTESTINAL HAEMORRHAGE [None]
  - MELAENA [None]
